FAERS Safety Report 7037794-5 (Version None)
Quarter: 2010Q4

REPORT INFORMATION
  Report Type: 
  Country: None (occurrence: None)
  Receive Date: 20101011
  Receipt Date: 20101004
  Transmission Date: 20110411
  Serious: Yes (Other)
  Sender: FDA-Public Use
  Company Number: US-WYE-H17977910

PATIENT
  Sex: Female
  Weight: 96.25 kg

DRUGS (5)
  1. EFFEXOR XR [Suspect]
     Indication: DEPRESSION
     Route: 048
     Dates: end: 20090101
  2. EFFEXOR XR [Suspect]
     Indication: DISTURBANCE IN ATTENTION
     Route: 048
     Dates: start: 20090101, end: 20100701
  3. EFFEXOR XR [Suspect]
     Route: 048
     Dates: start: 20100701, end: 20100701
  4. EFFEXOR XR [Suspect]
     Route: 048
     Dates: start: 20100701, end: 20100701
  5. EFFEXOR XR [Suspect]
     Route: 048
     Dates: start: 20100701

REACTIONS (9)
  - APATHY [None]
  - BODY HEIGHT DECREASED [None]
  - CARDIAC DISORDER [None]
  - CRYING [None]
  - DRUG INEFFECTIVE [None]
  - EJECTION FRACTION DECREASED [None]
  - ELECTROCARDIOGRAM ABNORMAL [None]
  - SOMNOLENCE [None]
  - VIRAL INFECTION [None]
